FAERS Safety Report 19710976 (Version 3)
Quarter: 2022Q1

REPORT INFORMATION
  Report Type: Spontaneous
  Country: US (occurrence: US)
  Receive Date: 20210816
  Receipt Date: 20220211
  Transmission Date: 20220423
  Serious: No
  Sender: FDA-Public Use
  Company Number: US-PFIZER INC-2021898427

PATIENT
  Age: 49 Year
  Sex: Female

DRUGS (1)
  1. XELJANZ XR [Suspect]
     Active Substance: TOFACITINIB CITRATE
     Indication: Rheumatoid arthritis
     Dosage: 11 MG, 1X/DAY
     Route: 048
     Dates: start: 202009

REACTIONS (7)
  - Nervousness [Unknown]
  - Discouragement [Recovered/Resolved]
  - Depressed mood [Recovered/Resolved]
  - Mutism [Unknown]
  - Malaise [Unknown]
  - COVID-19 [Recovering/Resolving]
  - Influenza [Recovering/Resolving]
